FAERS Safety Report 25671978 (Version 1)
Quarter: 2025Q3

REPORT INFORMATION
  Report Type: Report from Study
  Country: US (occurrence: US)
  Receive Date: 20250812
  Receipt Date: 20250812
  Transmission Date: 20251020
  Serious: Yes (Other)
  Sender: ABBVIE
  Company Number: US-ABBVIE-6407851

PATIENT
  Age: 58 Year
  Sex: Female

DRUGS (1)
  1. SKYRIZI [Suspect]
     Active Substance: RISANKIZUMAB-RZAA
     Indication: Crohn^s disease
     Route: 058
     Dates: start: 20250421

REACTIONS (5)
  - Abdominal wall haemorrhage [Unknown]
  - Crohn^s disease [Recovering/Resolving]
  - Abdominal pain [Unknown]
  - Gastrointestinal wall thickening [Unknown]
  - Gastrointestinal inflammation [Unknown]

NARRATIVE: CASE EVENT DATE: 20250101
